FAERS Safety Report 5083259-X (Version None)
Quarter: 2006Q3

REPORT INFORMATION
  Report Type: 
  Country: None (occurrence: None)
  Receive Date: 20060720
  Receipt Date: 20060509
  Transmission Date: 20061208
  Serious: Yes (Hospitalization)
  Sender: FDA-Public Use
  Company Number: 2006063688

PATIENT
  Age: 71 Year
  Sex: Female
  Weight: 60.782 kg

DRUGS (1)
  1. CELEBREX [Suspect]
     Indication: MUSCULOSKELETAL PAIN
     Dosage: (200 MG)

REACTIONS (1)
  - CEREBROVASCULAR ACCIDENT [None]
